FAERS Safety Report 22380298 (Version 15)
Quarter: 2025Q2

REPORT INFORMATION
  Report Type: Spontaneous
  Country: CA (occurrence: CA)
  Receive Date: 20230529
  Receipt Date: 20250519
  Transmission Date: 20250716
  Serious: Yes (Hospitalization, Other)
  Sender: PFIZER
  Company Number: CA-PFIZER INC-202300202412

PATIENT
  Age: 59 Year
  Sex: Female
  Weight: 78.998 kg

DRUGS (30)
  1. RUXIENCE [Suspect]
     Active Substance: RITUXIMAB-PVVR
     Indication: Rheumatoid arthritis
     Route: 042
     Dates: start: 20230524, end: 20230607
  2. RUXIENCE [Suspect]
     Active Substance: RITUXIMAB-PVVR
     Route: 042
     Dates: start: 20230607
  3. RUXIENCE [Suspect]
     Active Substance: RITUXIMAB-PVVR
     Route: 042
     Dates: start: 20231207
  4. RUXIENCE [Suspect]
     Active Substance: RITUXIMAB-PVVR
     Route: 042
     Dates: start: 20231220
  5. RUXIENCE [Suspect]
     Active Substance: RITUXIMAB-PVVR
     Route: 042
     Dates: start: 20241021, end: 20241021
  6. RUXIENCE [Suspect]
     Active Substance: RITUXIMAB-PVVR
     Route: 042
     Dates: start: 20250421, end: 20250421
  7. ACETAMINOPHEN [Concomitant]
     Active Substance: ACETAMINOPHEN
     Dosage: 1000 MG, 4X/DAY
  8. ACETAMINOPHEN [Concomitant]
     Active Substance: ACETAMINOPHEN
     Dates: start: 20241021, end: 20241021
  9. ZOLEDRONIC ACID [Concomitant]
     Active Substance: ZOLEDRONIC ACID
  10. VERAPAMIL HYDROCHLORIDE [Concomitant]
     Active Substance: VERAPAMIL HYDROCHLORIDE
     Dosage: 80 MG, 3X/DAY
  11. DIPHENHYDRAMINE [Concomitant]
     Active Substance: DIPHENHYDRAMINE
     Indication: Premedication
     Dates: start: 20241021, end: 20241021
  12. FUROSEMIDE [Concomitant]
     Active Substance: FUROSEMIDE
     Dosage: 20 MG, 1X/DAY,  (PRO FUROSEMIDE ID 20 MG)
  13. OXYQUINOLINE [Concomitant]
     Active Substance: OXYQUINOLINE
     Dosage: 300 MG, 1X/DAY, ID 300 (MG)
  14. JAMP ATENOLOL [Concomitant]
     Dosage: 50 MG, 4X/DAY
  15. JAMP VALACYCLOVIR [Concomitant]
     Dosage: 2000 MG, 2X/DAY (IF NEEDED)
  16. LORAZEPAM [Concomitant]
     Active Substance: LORAZEPAM
     Dosage: 1 MG, 1X/DAY, PRO LORAZEPAM ID
  17. M CETIRIZINE [Concomitant]
  18. METHOTREXATE [Concomitant]
     Active Substance: METHOTREXATE
     Dosage: 15 MG, WEEKLY(UNE FOIS/SEM )
  19. METHYLPREDNISOLONE [Concomitant]
     Active Substance: METHYLPREDNISOLONE
     Dates: start: 20241021, end: 20241021
  20. MINT LEUCOVORIN [Concomitant]
     Dosage: 5 MG, WEEKLY(UNE FOIS/SEM )
  21. OXYCODONE [Concomitant]
     Active Substance: OXYCODONE
     Dosage: 10 MG, 2X/DAY
  22. PANTOPRAZOLE [Concomitant]
     Active Substance: PANTOPRAZOLE
     Dosage: 40 MG, 2X/DAY
  23. PENTOXIFYLLINE [Concomitant]
     Active Substance: PENTOXIFYLLINE
     Dosage: 400 MG, 3X/DAY (SR)
  24. PREDNISONE [Concomitant]
     Active Substance: PREDNISONE
     Dosage: 5 MG, 1X/DAY, ID 5 (MG)
  25. PROCAL [SODIUM FLUORIDE] [Concomitant]
     Dosage: 500 MG, 2X/DAY
  26. OLOPATADINE HYDROCHLORIDE [Concomitant]
     Active Substance: OLOPATADINE HYDROCHLORIDE
     Dosage: 0.2 %, 1X/DAY, (0.2 % GTTE OPHT ID)
  27. OXYCODONE HYDROCHLORIDE [Concomitant]
     Active Substance: OXYCODONE HYDROCHLORIDE
     Dosage: 5 MG, 4X/DAY
  28. CLOBETASOL PROPIONATE CREAM [Concomitant]
     Active Substance: CLOBETASOL PROPIONATE
  29. INDOMETHACIN [Concomitant]
     Active Substance: INDOMETHACIN
     Dosage: 25 MG, 2X/DAY
  30. CHOLECALCIFEROL [Concomitant]
     Active Substance: CHOLECALCIFEROL
     Dosage: 10000 IU, WEEKLY(FOIS/SEM )

REACTIONS (29)
  - Diverticulitis [Recovered/Resolved]
  - Pyrexia [Unknown]
  - Neutropenia [Recovered/Resolved]
  - Clostridium difficile infection [Recovered/Resolved]
  - Pericarditis [Not Recovered/Not Resolved]
  - Vein rupture [Recovered/Resolved]
  - Chromaturia [Recovered/Resolved]
  - Infusion site extravasation [Recovered/Resolved]
  - Poor venous access [Recovered/Resolved]
  - Chest discomfort [Recovered/Resolved]
  - Oral disorder [Not Recovered/Not Resolved]
  - Oral discomfort [Not Recovered/Not Resolved]
  - Mouth ulceration [Not Recovered/Not Resolved]
  - Palpitations [Recovered/Resolved]
  - Discomfort [Recovered/Resolved]
  - Osteoporosis [Not Recovered/Not Resolved]
  - Erythema [Unknown]
  - Insomnia [Recovered/Resolved]
  - Hot flush [Recovered/Resolved]
  - Dizziness [Recovered/Resolved]
  - Headache [Not Recovered/Not Resolved]
  - Oral fungal infection [Not Recovered/Not Resolved]
  - Condition aggravated [Not Recovered/Not Resolved]
  - Abdominal pain [Unknown]
  - Fatigue [Unknown]
  - Nausea [Unknown]
  - Blood pressure fluctuation [Unknown]
  - Off label use [Unknown]
  - Off label use [Unknown]

NARRATIVE: CASE EVENT DATE: 20230101
